FAERS Safety Report 13763744 (Version 2)
Quarter: 2017Q3

REPORT INFORMATION
  Report Type: Spontaneous
  Country: US (occurrence: US)
  Receive Date: 20170718
  Receipt Date: 20170725
  Transmission Date: 20171127
  Serious: Yes (Death)
  Sender: FDA-Public Use
  Company Number: US-CELGENEUS-USA-2016054404

PATIENT
  Sex: Male

DRUGS (2)
  1. THALOMID [Suspect]
     Active Substance: THALIDOMIDE
     Dosage: 50 MILLIGRAM
     Route: 048
     Dates: start: 201605
  2. THALOMID [Suspect]
     Active Substance: THALIDOMIDE
     Indication: MEDULLOBLASTOMA
     Dosage: 150 MILLIGRAM
     Route: 048
     Dates: start: 201604

REACTIONS (2)
  - Medulloblastoma [Fatal]
  - Thrombocytopenia [Unknown]

NARRATIVE: CASE EVENT DATE: 2016
